FAERS Safety Report 5822333-4 (Version None)
Quarter: 2008Q3

REPORT INFORMATION
  Report Type: 
  Country: None (occurrence: None)
  Receive Date: 20080723
  Receipt Date: 20080723
  Transmission Date: 20090109
  Serious: Yes (Life-Threatening)
  Sender: FDA-Public Use
  Company Number: None

PATIENT
  Age: 83 Year
  Sex: Male
  Weight: 75 kg

DRUGS (1)
  1. BUMINATE 5% [Suspect]
     Indication: BLOOD PRESSURE FLUCTUATION
     Dosage: 500 ML IV DRIP
     Route: 041
     Dates: start: 20080616, end: 20080616

REACTIONS (2)
  - ARRHYTHMIA SUPRAVENTRICULAR [None]
  - BLOOD PRESSURE DECREASED [None]
